FAERS Safety Report 9242348 (Version 3)
Quarter: 2013Q3

REPORT INFORMATION
  Report Type: Report from Study
  Country: CA (occurrence: CA)
  Receive Date: 20130419
  Receipt Date: 20130829
  Transmission Date: 20140515
  Serious: Yes (Other)
  Sender: FDA-Public Use
  Company Number: CA-JNJFOC-20130408334

PATIENT
  Age: 52 Year
  Sex: Female

DRUGS (8)
  1. SIMPONI [Suspect]
     Indication: PSORIATIC ARTHROPATHY
     Route: 058
     Dates: start: 20130107
  2. SIMPONI [Suspect]
     Indication: PSORIATIC ARTHROPATHY
     Route: 058
     Dates: start: 20130305
  3. PREDNISONE [Concomitant]
     Route: 048
  4. CYMBALTA [Concomitant]
     Route: 048
  5. CRESTOR [Concomitant]
     Route: 048
  6. LYRICA [Concomitant]
     Route: 048
  7. JANUMET [Concomitant]
     Route: 048
  8. CODEINE CONTIN [Concomitant]
     Route: 048

REACTIONS (9)
  - Colitis [Unknown]
  - Anaemia [Unknown]
  - Pulmonary mass [Not Recovered/Not Resolved]
  - Lung infection [Recovered/Resolved]
  - Psoriatic arthropathy [Unknown]
  - Local swelling [Unknown]
  - Influenza [Unknown]
  - Productive cough [Unknown]
  - Gait disturbance [Unknown]
